FAERS Safety Report 23964657 (Version 1)
Quarter: 2024Q2

REPORT INFORMATION
  Report Type: Spontaneous
  Country: CN (occurrence: CN)
  Receive Date: 20240612
  Receipt Date: 20240612
  Transmission Date: 20240715
  Serious: Yes (Hospitalization, Other)
  Sender: FDA-Public Use
  Company Number: CN-HALEON-2180863

PATIENT
  Age: 60 Year
  Sex: Female
  Weight: 50.2 kg

DRUGS (1)
  1. IBUPROFEN [Suspect]
     Active Substance: IBUPROFEN
     Indication: Pyrexia
     Route: 048

REACTIONS (7)
  - Renal failure [Recovering/Resolving]
  - Febrile infection [Recovering/Resolving]
  - Hepatic failure [Recovering/Resolving]
  - Hyperlipidaemia [Recovering/Resolving]
  - Anaemia [Recovering/Resolving]
  - Blood creatinine increased [Recovering/Resolving]
  - Acute kidney injury [Recovering/Resolving]
